FAERS Safety Report 8296539-1 (Version None)
Quarter: 2012Q2

REPORT INFORMATION
  Report Type: 
  Country: None (occurrence: None)
  Receive Date: 20120418
  Receipt Date: 20120417
  Transmission Date: 20120825
  Serious: Yes (Hospitalization, Other)
  Sender: FDA-Public Use
  Company Number: US-MERCK-1204USA02221

PATIENT
  Age: 74 Year
  Sex: Male

DRUGS (11)
  1. REVLIMID [Suspect]
     Indication: MULTIPLE MYELOMA
     Dosage: DAILY FOR 2 WEEKS 1 WEEK OFF
     Route: 048
     Dates: start: 20120203, end: 20120218
  2. REVLIMID [Suspect]
     Dosage: DAILY FOR 2 WEEKS 1 WEEK OFF
     Route: 048
     Dates: start: 20120224
  3. HYDROCHLOROTHIAZIDE [Concomitant]
     Route: 048
  4. ALPRAZOLAM [Concomitant]
     Route: 065
  5. DECADRON [Suspect]
     Route: 048
  6. LEVOTHROID [Concomitant]
     Route: 065
  7. VITAMIN B COMPLEX [Concomitant]
     Route: 065
  8. VICODIN [Concomitant]
     Route: 065
  9. ONDANSETRON HYDROCHLORIDE [Concomitant]
     Route: 065
  10. VELCADE [Suspect]
     Route: 065
  11. PROCHLORPERAZINE MALEATE [Concomitant]
     Route: 065

REACTIONS (5)
  - SEPSIS [None]
  - HYPOTENSION [None]
  - IMMUNOSUPPRESSION [None]
  - INFLUENZA [None]
  - PRESYNCOPE [None]
